FAERS Safety Report 5456712-4 (Version None)
Quarter: 2007Q3

REPORT INFORMATION
  Report Type: 
  Country: None (occurrence: None)
  Receive Date: 20070918
  Receipt Date: 20070430
  Transmission Date: 20080115
  Serious: Yes (Hospitalization)
  Sender: FDA-Public Use
  Company Number: US-ASTRAZENECA-2006UW26066

PATIENT
  Age: 204 Month
  Sex: Male
  Weight: 81.8 kg

DRUGS (1)
  1. SEROQUEL [Suspect]
     Route: 048
     Dates: start: 20060901, end: 20061101

REACTIONS (1)
  - DIABETES MELLITUS [None]
